FAERS Safety Report 8063350-6 (Version None)
Quarter: 2012Q1

REPORT INFORMATION
  Report Type: 
  Country: None (occurrence: None)
  Receive Date: 20120123
  Receipt Date: 20120118
  Transmission Date: 20120608
  Serious: Yes (Other)
  Sender: FDA-Public Use
  Company Number: PHEH2012US001630

PATIENT
  Sex: Female

DRUGS (3)
  1. SANDOSTATIN LAR [Suspect]
     Dosage: UNK UKN, UNK
     Route: 030
  2. SANDOSTATIN [Suspect]
     Dosage: 5000 UG 3X DAY
  3. SANDOSTATIN LAR [Suspect]
     Dosage: UNK UKN, UNK

REACTIONS (3)
  - FLUSHING [None]
  - AORTIC STENOSIS [None]
  - METASTASES TO LUNG [None]
